FAERS Safety Report 9601118 (Version 2)
Quarter: 2013Q4

REPORT INFORMATION
  Report Type: Spontaneous
  Country: US (occurrence: US)
  Receive Date: 20131004
  Receipt Date: 20131004
  Transmission Date: 20140711
  Serious: No
  Sender: FDA-Public Use
  Company Number: US-AMGEN-USASP2013032064

PATIENT
  Age: 59 Year
  Sex: Female
  Weight: 82 kg

DRUGS (8)
  1. ENBREL [Suspect]
     Indication: PRODUCT USED FOR UNKNOWN INDICATION
     Dosage: 50 MG, QWK
     Route: 058
  2. METHOTREXATE [Concomitant]
     Dosage: 2.5 MG, UNK
     Route: 048
  3. FOLIC ACID [Concomitant]
     Dosage: 1 MG, UNK
     Route: 048
  4. GLUCOSAMINE AND CHONDROITIN [Concomitant]
     Dosage: UNK
     Route: 048
  5. CALCIUM +D                         /00944201/ [Concomitant]
     Dosage: UNK
     Route: 048
  6. COQ-10 [Concomitant]
     Dosage: 100 MG, UNK
     Route: 048
  7. MULTI VIT CHOICE [Concomitant]
     Dosage: UNK
     Route: 048
  8. CYMBALTA [Concomitant]
     Dosage: 60 MG, UNK
     Route: 048

REACTIONS (2)
  - Cystitis [Unknown]
  - Sinusitis [Unknown]
